FAERS Safety Report 5827508-6 (Version None)
Quarter: 2008Q2

REPORT INFORMATION
  Report Type: 
  Country: None (occurrence: None)
  Receive Date: 20080601
  Receipt Date: 20070629
  Transmission Date: 20081010
  Serious: No
  Sender: FDA-Public Use
  Company Number: US200802002740

PATIENT
  Age: 57 Year
  Sex: Female
  Weight: 104.8 kg

DRUGS (4)
  1. BYETTA [Suspect]
     Indication: TYPE 2 DIABETES MELLITUS
     Dosage: 5 UG, 2/D, SUBCUTANEOUS; 5 UG, 2/D, SUBCUTANEOUS
     Route: 058
     Dates: start: 20050719, end: 20050809
  2. BYETTA [Suspect]
     Indication: TYPE 2 DIABETES MELLITUS
     Dosage: 5 UG, 2/D, SUBCUTANEOUS; 5 UG, 2/D, SUBCUTANEOUS
     Route: 058
     Dates: start: 20050812, end: 20050815
  3. GLUCOPHAGE [Concomitant]
  4. GLUCOTROL XL [Concomitant]

REACTIONS (5)
  - ARTHROSCOPY [None]
  - BLOOD GLUCOSE INCREASED [None]
  - DYSPEPSIA [None]
  - NAUSEA [None]
  - POST PROCEDURAL INFECTION [None]
